FAERS Safety Report 21724233 (Version 1)
Quarter: 2022Q4

REPORT INFORMATION
  Report Type: Spontaneous
  Country: FR (occurrence: FR)
  Receive Date: 20221213
  Receipt Date: 20221213
  Transmission Date: 20230113
  Serious: Yes (Death, Other)
  Sender: FDA-Public Use
  Company Number: FR-BAXTER-2022BAX026250

PATIENT
  Age: 85 Year
  Sex: Female

DRUGS (3)
  1. DEXAMETHASONE [Suspect]
     Active Substance: DEXAMETHASONE
     Indication: Product used for unknown indication
     Dosage: 40 MG/DOSE 1 DOSE(S)/WEEK 4 WEEK(S)/CYCLE, (TREATMENT LINE NUMBER 1, DURATION: 0.8 MONTHS)
     Route: 065
     Dates: end: 20201214
  2. CYCLOPHOSPHAMIDE [Suspect]
     Active Substance: CYCLOPHOSPHAMIDE
     Indication: Product used for unknown indication
     Dosage: 550 MG/DOSE 1 DOSE(S)/WEEK 3 WEEK(S)/CYCLE, (TREATMENT LINE NUMBER 1, DURATION: 0.8 MONTHS)
     Route: 065
     Dates: end: 20201214
  3. BORTEZOMIB [Suspect]
     Active Substance: BORTEZOMIB
     Indication: Product used for unknown indication
     Dosage: 2.4 MG/DOSE 1 DOSE(S)/WEEK 4 WEEK(S)/CYCLE, (TREATMENT LINE NUMBER 1, DURATION: 0.8 MONTHS)
     Route: 065
     Dates: end: 20201214

REACTIONS (2)
  - Death [Fatal]
  - Drug intolerance [Unknown]

NARRATIVE: CASE EVENT DATE: 20210202
